FAERS Safety Report 15361992 (Version 2)
Quarter: 2018Q3

REPORT INFORMATION
  Report Type: Spontaneous
  Country: FR (occurrence: FR)
  Receive Date: 20180907
  Receipt Date: 20180911
  Transmission Date: 20181010
  Serious: Yes (Hospitalization, Other)
  Sender: FDA-Public Use
  Company Number: FR-GLAXOSMITHKLINE-FR2018159494

PATIENT
  Age: 77 Year
  Sex: Female
  Weight: 79.4 kg

DRUGS (31)
  1. MYCOSTER [Concomitant]
     Active Substance: CICLOPIROX\CICLOPIROX OLAMINE
     Indication: INGROWING NAIL
     Dosage: UNK (1 APPLICATION)
     Route: 065
  2. XELEVIA [Concomitant]
     Active Substance: SITAGLIPTIN PHOSPHATE
     Indication: DIABETES MELLITUS
     Dosage: 100 MG, QD
     Route: 065
     Dates: start: 20180220
  3. CALCIPARINE [Concomitant]
     Active Substance: HEPARIN CALCIUM
     Indication: THROMBOSIS PROPHYLAXIS
     Dosage: 1500 IU, QD
     Route: 065
     Dates: start: 20180221, end: 20180321
  4. INSULINE ASPARTE [Concomitant]
     Indication: DIABETIC METABOLIC DECOMPENSATION
     Dosage: 300 MG, QD
     Route: 065
     Dates: start: 20180221, end: 20180307
  5. VILDAGLIPTINE [Concomitant]
     Indication: DIABETES MELLITUS
     Dosage: 50 MG, QD
     Route: 065
     Dates: start: 20180226, end: 20180307
  6. PHLOROGLUCINOL [Concomitant]
     Active Substance: PHLOROGLUCINOL
     Indication: DYSPEPSIA
     Dosage: 40 MG, QD
     Route: 065
     Dates: start: 20180221, end: 20180221
  7. TARDYFERON (FERROUS SULPHATE SESQUIHYDRATE) [Concomitant]
     Active Substance: FERROUS SULFATE
     Indication: SERUM FERRITIN DECREASED
     Dosage: 80 MG, QD
     Route: 065
     Dates: start: 20170114, end: 20180220
  8. ASPIRIN PROTECT [Concomitant]
     Active Substance: ASPIRIN
     Indication: PRODUCT USED FOR UNKNOWN INDICATION
     Dosage: 100 MG, QD
     Route: 065
     Dates: start: 20180124, end: 20180220
  9. AMLODIPINE [Concomitant]
     Active Substance: AMLODIPINE BESYLATE
     Indication: HYPERTENSION
     Dosage: 10 MG, QD
     Route: 065
  10. DIOSMECTITE [Concomitant]
     Active Substance: MONTMORILLONITE
     Indication: DIARRHOEA
     Dosage: 3 G, QD
     Route: 065
     Dates: start: 20180207, end: 20180220
  11. BROMAZEPAM [Concomitant]
     Active Substance: BROMAZEPAM
     Indication: ANXIETY
     Dosage: 6 MG, QD
     Route: 065
     Dates: start: 2016
  12. ALPRAZOLAM. [Concomitant]
     Active Substance: ALPRAZOLAM
     Indication: ANXIETY
     Dosage: 0.25 MG, QD
     Route: 065
     Dates: start: 2016
  13. REVLIMID [Suspect]
     Active Substance: LENALIDOMIDE
     Indication: MYELODYSPLASTIC SYNDROME
     Dosage: 210 MG, 28 DAY
     Route: 048
     Dates: start: 20180124, end: 20180219
  14. METFORMIN [Concomitant]
     Active Substance: METFORMIN HYDROCHLORIDE
     Indication: DIABETES MELLITUS
     Dosage: 700 MG, QD
     Route: 065
     Dates: end: 20180220
  15. RAMIPRIL. [Concomitant]
     Active Substance: RAMIPRIL
     Indication: HYPERTENSION
     Dosage: 10 MG, QD
     Route: 065
  16. TERBINAFINE. [Suspect]
     Active Substance: TERBINAFINE
     Dosage: 250 MG, QD
     Route: 065
     Dates: start: 20180220
  17. SALBUTAMOL [Concomitant]
     Active Substance: ALBUTEROL
     Indication: PLEURAL EFFUSION
     Dosage: 5 MG, QD
     Route: 065
     Dates: start: 20180228
  18. INDAPAMIDE. [Concomitant]
     Active Substance: INDAPAMIDE
     Indication: HYPERTENSION
     Dosage: 1.5 MG, QD
     Route: 065
  19. CEFAZOLINE [Concomitant]
     Active Substance: CEFAZOLIN SODIUM
     Indication: STAPHYLOCOCCAL INFECTION
     Dosage: 2 G, QD
     Route: 065
     Dates: start: 20180301, end: 20180313
  20. IPRATROPIUM [Concomitant]
     Active Substance: IPRATROPIUM
     Indication: PLEURAL EFFUSION
     Dosage: 5 MG, QD
     Route: 065
     Dates: start: 20180228, end: 20180313
  21. BROMAZEPAN [Concomitant]
     Active Substance: BROMAZEPAM
     Indication: ANXIETY
     Dosage: 6 MG, QD
     Route: 065
     Dates: start: 2016
  22. FUROSEMIDE. [Concomitant]
     Active Substance: FUROSEMIDE
     Indication: PLEURAL EFFUSION
     Dosage: 80 MG, QD
     Route: 065
     Dates: start: 20180228, end: 20180228
  23. PARACETAMOL [Concomitant]
     Active Substance: ACETAMINOPHEN
     Dosage: 4 GRAM
     Route: 065
     Dates: start: 20180221
  24. AERIUS (DESLORATADINA) [Concomitant]
     Indication: RHINITIS
     Dosage: 5 MG, QD
     Route: 065
     Dates: start: 20180207, end: 20180220
  25. DIAMICRON [Concomitant]
     Active Substance: GLICLAZIDE
     Indication: DIABETES MELLITUS
     Dosage: 60 MG, QD
     Route: 065
     Dates: start: 20180308, end: 20180312
  26. MACROGOL [Concomitant]
     Active Substance: POLYETHYLENE GLYCOLS
     Indication: CONSTIPATION PROPHYLAXIS
     Dosage: UNK
     Route: 065
  27. TERBINAFINE. [Suspect]
     Active Substance: TERBINAFINE
     Indication: INGROWING NAIL
     Dosage: 250 MG, QD
     Route: 065
     Dates: start: 20180124
  28. DIFFU K [Concomitant]
     Active Substance: POTASSIUM CHLORIDE
     Indication: PROPHYLAXIS
     Dosage: 600 MG, QD
     Route: 064
     Dates: start: 20180221, end: 20180320
  29. PARACETAMOL [Concomitant]
     Active Substance: ACETAMINOPHEN
     Indication: STAPHYLOCOCCAL INFECTION
     Dosage: 4 G, QD
     Route: 065
     Dates: start: 20180221
  30. INSULINE DETEMIR [Concomitant]
     Indication: DIABETIC METABOLIC DECOMPENSATION
     Dosage: 20 IU, QD
     Route: 065
     Dates: start: 20180226, end: 20180307
  31. EPOETIN ZETA [Concomitant]
     Active Substance: ERYTHROPOIETIN
     Indication: MYELODYSPLASTIC SYNDROME
     Dosage: 300 UG, QW
     Route: 058
     Dates: start: 20180301

REACTIONS (5)
  - Acute generalised exanthematous pustulosis [Recovered/Resolved]
  - Petechiae [Recovered/Resolved]
  - Urticaria [Recovered/Resolved]
  - Acute kidney injury [Recovered/Resolved with Sequelae]
  - Pruritus [Recovered/Resolved]

NARRATIVE: CASE EVENT DATE: 20180125
